FAERS Safety Report 6698672-4 (Version None)
Quarter: 2010Q2

REPORT INFORMATION
  Report Type: 
  Country: None (occurrence: None)
  Receive Date: 20100427
  Receipt Date: 20100423
  Transmission Date: 20101027
  Serious: Yes (Death)
  Sender: FDA-Public Use
  Company Number: US-ASTRAZENECA-2010SE18247

PATIENT
  Age: 22903 Day
  Sex: Male
  Weight: 74.8 kg

DRUGS (3)
  1. SYMBICORT [Suspect]
     Indication: CHRONIC OBSTRUCTIVE PULMONARY DISEASE
     Route: 055
     Dates: start: 20090602, end: 20090609
  2. M.V.I. [Concomitant]
  3. BENECAR [Concomitant]

REACTIONS (6)
  - ABNORMAL BEHAVIOUR [None]
  - BLOOD PRESSURE ABNORMAL [None]
  - DIZZINESS [None]
  - MYOCARDIAL INFARCTION [None]
  - NERVOUSNESS [None]
  - TREMOR [None]
